FAERS Safety Report 8338501-6 (Version None)
Quarter: 2012Q2

REPORT INFORMATION
  Report Type: 
  Country: None (occurrence: None)
  Receive Date: 20120504
  Receipt Date: 20120427
  Transmission Date: 20120825
  Serious: Yes (Other)
  Sender: FDA-Public Use
  Company Number: JP-TEVA-336271USA

PATIENT
  Age: 73 Year
  Sex: Female

DRUGS (1)
  1. TREANDA [Suspect]
     Indication: B-CELL LYMPHOMA
     Dosage: 90 MG/M2;
     Route: 042
     Dates: start: 20110317

REACTIONS (6)
  - ANAEMIA [None]
  - PLATELET COUNT DECREASED [None]
  - NAUSEA [None]
  - NEUTROPHIL COUNT DECREASED [None]
  - WHITE BLOOD CELL COUNT DECREASED [None]
  - ARRHYTHMIA [None]
